FAERS Safety Report 6057528-0 (Version None)
Quarter: 2009Q1

REPORT INFORMATION
  Report Type: 
  Country: None (occurrence: None)
  Receive Date: 20090129
  Receipt Date: 20090119
  Transmission Date: 20090719
  Serious: Yes (Hospitalization)
  Sender: FDA-Public Use
  Company Number: FR-ROCHE-610097

PATIENT
  Sex: Male

DRUGS (4)
  1. CELLCEPT [Suspect]
     Indication: RENAL TRANSPLANT
     Route: 048
     Dates: end: 20081214
  2. BACTRIM [Suspect]
     Indication: RENAL TRANSPLANT
     Route: 048
     Dates: end: 20081214
  3. ZELITREX [Suspect]
     Indication: RENAL TRANSPLANT
     Route: 048
     Dates: end: 20081214
  4. PROPYL-THIOURACIL [Suspect]
     Indication: HYPERTHYROIDISM
     Route: 048
     Dates: start: 20081120, end: 20081205

REACTIONS (1)
  - AGRANULOCYTOSIS [None]
